FAERS Safety Report 8553944-3 (Version None)
Quarter: 2012Q3

REPORT INFORMATION
  Report Type: 
  Country: None (occurrence: None)
  Receive Date: 20120731
  Receipt Date: 20120718
  Transmission Date: 20120928
  Serious: Yes (Life-Threatening, Hospitalization)
  Sender: FDA-Public Use
  Company Number: DE-CELGENEUS-062-CCAZA-12050273

PATIENT
  Age: 79 Year
  Sex: Male
  Weight: 73 kg

DRUGS (12)
  1. ALLOPURINOL [Concomitant]
     Dosage: 100 MILLIGRAM
     Route: 048
     Dates: start: 20120404
  2. AGGRENOX [Concomitant]
     Indication: PROPHYLAXIS
     Dosage: 450 MILLIGRAM
     Route: 048
     Dates: end: 20120502
  3. CITALOPRAM HYDROBROMIDE [Concomitant]
     Dosage: 20 MILLIGRAM
     Route: 048
  4. TAMSULOSIN HCL [Concomitant]
     Dosage: .4 MILLIGRAM
     Route: 048
  5. POTASSIUM CHLORIDE [Concomitant]
     Indication: PROPHYLAXIS
     Dosage: 40MVAL
     Route: 041
     Dates: start: 20120502, end: 20120502
  6. SIMVASTATIN [Concomitant]
     Dosage: 40 MILLIGRAM
     Route: 048
     Dates: end: 20120502
  7. PANTOPRAZOLE [Concomitant]
     Indication: NAUSEA
     Dosage: 40 MILLIGRAM
     Route: 048
     Dates: start: 20120430
  8. PARACODIN BITARTRATE TAB [Concomitant]
     Indication: COUGH
     Dosage: 20 DROPS
     Route: 048
     Dates: start: 20120501, end: 20120501
  9. AMLODIPINE [Concomitant]
     Dosage: 10 MILLIGRAM
     Route: 048
  10. AZACITIDINE [Suspect]
     Dosage: 75 MILLIGRAM/SQ. METER
     Route: 058
     Dates: start: 20120425, end: 20120501
  11. METOPROLOL TARTRATE [Concomitant]
     Dosage: 47.5 MILLIGRAM
     Route: 048
  12. VALSARTAN [Concomitant]
     Dosage: 172.5 MILLIGRAM
     Route: 048

REACTIONS (2)
  - THROMBOTIC THROMBOCYTOPENIC PURPURA [None]
  - PNEUMONIA [None]
